FAERS Safety Report 24122563 (Version 2)
Quarter: 2024Q3

REPORT INFORMATION
  Report Type: Spontaneous
  Country: US (occurrence: US)
  Receive Date: 20240723
  Receipt Date: 20240906
  Transmission Date: 20241017
  Serious: No
  Sender: GLAUKOS
  Company Number: US-GLK-002358

PATIENT
  Age: 39 Year
  Sex: Female

DRUGS (2)
  1. PHOTREXA VISCOUS [Suspect]
     Active Substance: RIBOFLAVIN 5^-PHOSPHATE SODIUM
     Indication: Keratoconus
     Dosage: LEFT EYE
     Route: 047
     Dates: start: 20240603, end: 20240603
  2. PHOTREXA VISCOUS [Suspect]
     Active Substance: RIBOFLAVIN 5^-PHOSPHATE SODIUM
     Dosage: PARTIAL PHOTREXA VISCOUS KIT; LEFT EYE
     Route: 047
     Dates: start: 20240603, end: 20240603

REACTIONS (2)
  - Incorrect dose administered [Unknown]
  - No adverse event [Unknown]

NARRATIVE: CASE EVENT DATE: 20240603
